FAERS Safety Report 9636462 (Version 6)
Quarter: 2014Q2

REPORT INFORMATION
  Report Type: Spontaneous
  Country: FR (occurrence: FR)
  Receive Date: 20131021
  Receipt Date: 20140506
  Transmission Date: 20141212
  Serious: Yes (Other)
  Sender: FDA-Public Use
  Company Number: FR-VERTEX PHARMACEUTICALS INC-2013-008608

PATIENT
  Age: 9 Year
  Sex: Female
  Weight: 31 kg

DRUGS (17)
  1. KALYDECO [Suspect]
     Indication: CYSTIC FIBROSIS
     Dosage: 150 MG, BID
     Route: 048
     Dates: start: 20120801, end: 20120807
  2. KALYDECO [Suspect]
     Dosage: UNK
     Dates: start: 20120829, end: 20130806
  3. UVESTEROL [Concomitant]
  4. HYDROSOL POLYVITAMINE [Concomitant]
  5. UVEDOSE [Concomitant]
  6. CREON [Concomitant]
  7. MOPRAL [Concomitant]
  8. PULMOZYME [Concomitant]
  9. NASONEX [Concomitant]
  10. SERETIDE [Concomitant]
  11. DELURSAN [Concomitant]
     Indication: LIVER DISORDER
  12. NACL [Concomitant]
  13. FORLAX [Concomitant]
  14. FIBRELINE [Concomitant]
  15. AERIUS [Concomitant]
  16. AUGMENTIN [Concomitant]
     Dosage: UNK
  17. CLAMOXYL [Concomitant]
     Dosage: UNK

REACTIONS (4)
  - Hepatic fibrosis [Unknown]
  - Portal hypertension [Recovered/Resolved]
  - Hepatic enzyme increased [Not Recovered/Not Resolved]
  - Abdominal pain [Recovered/Resolved]
